FAERS Safety Report 9200981 (Version 1)
Quarter: 2013Q2

REPORT INFORMATION
  Report Type: Spontaneous
  Country: FR (occurrence: FR)
  Receive Date: 20130401
  Receipt Date: 20130401
  Transmission Date: 20140414
  Serious: Yes (Death)
  Sender: FDA-Public Use
  Company Number: FR-JNJFOC-20130315513

PATIENT
  Sex: Male

DRUGS (10)
  1. XARELTO [Suspect]
     Indication: CEREBROVASCULAR ACCIDENT PROPHYLAXIS
     Route: 048
     Dates: start: 20121217
  2. XARELTO [Suspect]
     Indication: ATRIAL FIBRILLATION
     Route: 048
     Dates: start: 20121217
  3. CLAVULANIC ACID [Concomitant]
     Indication: BRONCHITIS
     Route: 048
     Dates: start: 20130207
  4. AVLOCARDYL [Concomitant]
     Route: 065
  5. ALDACTONE [Concomitant]
     Route: 065
  6. CORDARONE [Concomitant]
     Route: 065
  7. AMOXICILLINE [Concomitant]
     Indication: BRONCHITIS
     Route: 065
     Dates: start: 20130207
  8. FUROSEMIDE [Concomitant]
     Indication: CARDIAC FAILURE
     Route: 048
  9. GLUCOPHAGE [Concomitant]
     Route: 065
  10. PERINDOPRIL [Concomitant]
     Route: 065

REACTIONS (2)
  - Occult blood [Fatal]
  - Haemoglobin decreased [Fatal]
